FAERS Safety Report 9081554 (Version 1)
Quarter: 2013Q1

REPORT INFORMATION
  Report Type: Report from Study
  Country: US (occurrence: US)
  Receive Date: 20130130
  Receipt Date: 20130130
  Transmission Date: 20140127
  Serious: No
  Sender: FDA-Public Use
  Company Number: US-ABBOTT-12P-163-0953692-00

PATIENT
  Age: 43 Year
  Sex: Female

DRUGS (9)
  1. HUMIRA 40 MG/ 0.8 ML PRE-FILLED SYRINGE [Suspect]
     Indication: RHEUMATOID ARTHRITIS
     Route: 058
     Dates: start: 201107, end: 201110
  2. LYRICA [Concomitant]
     Indication: FIBROMYALGIA
     Dosage: ONCE DAILY
  3. CELEBREX [Concomitant]
     Indication: ARTHRALGIA
     Dosage: TWICE DAILY
  4. METHOTREXATE [Concomitant]
     Indication: RHEUMATOID ARTHRITIS
     Dosage: ONCE WEEKLY
  5. LEUCOVORIN [Concomitant]
     Indication: MOUTH ULCERATION
     Dosage: ONCE WEEKLY
  6. PROZAC [Concomitant]
     Indication: DEPRESSION
     Dosage: ONCE DAILY
  7. WELLBUTRIN [Concomitant]
     Indication: DEPRESSION
     Dosage: ONCE DAILY
  8. XANAX [Concomitant]
     Indication: ANXIETY
  9. AMBIEN [Concomitant]
     Indication: INSOMNIA
     Dosage: ONCE DAILY

REACTIONS (7)
  - Fatigue [Recovering/Resolving]
  - Somnolence [Recovering/Resolving]
  - Malabsorption [Unknown]
  - Blood iron decreased [Unknown]
  - Vitamin B complex deficiency [Unknown]
  - Vitamin D decreased [Unknown]
  - Bronchitis [Recovered/Resolved]
